FAERS Safety Report 13277197 (Version 2)
Quarter: 2017Q1

REPORT INFORMATION
  Report Type: Spontaneous
  Country: CH (occurrence: CH)
  Receive Date: 20170228
  Receipt Date: 20170313
  Transmission Date: 20170428
  Serious: Yes (Hospitalization, Other)
  Sender: FDA-Public Use
  Company Number: CH-ASTELLAS-2017US007121

PATIENT
  Age: 43 Year
  Sex: Male

DRUGS (2)
  1. PROGRAF [Suspect]
     Active Substance: TACROLIMUS\TACROLIMUS ANHYDROUS
     Indication: LUNG TRANSPLANT
     Route: 048
  2. INSULIN [Concomitant]
     Active Substance: INSULIN NOS
     Indication: DIABETES MELLITUS
     Dosage: UNK UNK, UNKNOWN FREQ.
     Route: 065
     Dates: start: 201505

REACTIONS (9)
  - Haemothorax [Unknown]
  - Respiratory failure [Unknown]
  - Bronchitis bacterial [Unknown]
  - Osteoporosis [Unknown]
  - Wound dehiscence [Unknown]
  - Off label use [Unknown]
  - Pulmonary pneumatocele [Unknown]
  - Atelectasis [Unknown]
  - Wound infection [Unknown]

NARRATIVE: CASE EVENT DATE: 20160704
